FAERS Safety Report 9228308 (Version 1)
Quarter: 2013Q2

REPORT INFORMATION
  Report Type: Spontaneous
  Country: AU (occurrence: AU)
  Receive Date: 20130412
  Receipt Date: 20130412
  Transmission Date: 20140414
  Serious: Yes (Other)
  Sender: FDA-Public Use
  Company Number: AU-PFIZER INC-2013112022

PATIENT
  Sex: Female

DRUGS (1)
  1. EFEXOR XR [Suspect]
     Dosage: UNK

REACTIONS (13)
  - Suicidal ideation [Unknown]
  - Arthropathy [Unknown]
  - Dyskinesia [Unknown]
  - Aggression [Unknown]
  - Confusional state [Unknown]
  - Agitation [Unknown]
  - Tremor [Unknown]
  - Decreased appetite [Unknown]
  - Muscle twitching [Unknown]
  - Bruxism [Unknown]
  - Sedation [Unknown]
  - Dizziness postural [Unknown]
  - Feeling abnormal [Unknown]
